FAERS Safety Report 4617972-2 (Version None)
Quarter: 2005Q1

REPORT INFORMATION
  Report Type: 
  Country: None (occurrence: None)
  Receive Date: 20050314
  Receipt Date: 20050303
  Transmission Date: 20050727
  Serious: Yes (Other)
  Sender: FDA-Public Use
  Company Number: 2005-00504

PATIENT
  Age: 73 Year
  Sex: Male

DRUGS (1)
  1. IMMUCYST (BCG - IT (CONNAUGHT)), AVENTIS PASTEUR LTD., LOT NOT REP, I [Suspect]
     Indication: BLADDER CANCER
     Dosage: (81.0 MG); BLADDER
     Dates: start: 20050114, end: 20040216

REACTIONS (2)
  - HAEMATURIA [None]
  - HYPERTONIC BLADDER [None]
